FAERS Safety Report 23469242 (Version 1)
Quarter: 2024Q1

REPORT INFORMATION
  Report Type: Spontaneous
  Country: NO (occurrence: NO)
  Receive Date: 20240202
  Receipt Date: 20240202
  Transmission Date: 20240410
  Serious: Yes (Hospitalization, Other)
  Sender: FDA-Public Use
  Company Number: None

PATIENT

DRUGS (4)
  1. METOPROLOL SUCCINATE [Suspect]
     Active Substance: METOPROLOL SUCCINATE
     Indication: Heart rate increased
     Dosage: 2X25 MG PER DAY
     Route: 048
     Dates: start: 20231212
  2. TICAGRELOR [Concomitant]
     Active Substance: TICAGRELOR
     Indication: Thrombosis
     Dosage: 2X1 TABLETS DAILY
     Dates: start: 20231212
  3. ATORVASTATIN XIROMED [Concomitant]
     Indication: Hypercholesterolaemia
     Dosage: 1 DOSAGE FORM, QD
     Dates: start: 20231212
  4. ASPIRIN\MAGNESIUM OXIDE [Concomitant]
     Active Substance: ASPIRIN\MAGNESIUM OXIDE
     Indication: Antiplatelet therapy
     Dosage: 75 MILLIGRAM, QD
     Dates: start: 20231212

REACTIONS (5)
  - Cardiac fibrillation [Unknown]
  - Oxygen saturation decreased [Recovering/Resolving]
  - Motion sickness [Recovering/Resolving]
  - Nausea [Recovering/Resolving]
  - Depression [Recovering/Resolving]

NARRATIVE: CASE EVENT DATE: 20231212
